FAERS Safety Report 4978111-1 (Version None)
Quarter: 2006Q2

REPORT INFORMATION
  Report Type: 
  Country: None (occurrence: None)
  Receive Date: 20060420
  Receipt Date: 20060410
  Transmission Date: 20061013
  Serious: Yes (Death, Life-Threatening)
  Sender: FDA-Public Use
  Company Number: DE-SANOFI-SYNTHELABO-A04200600405

PATIENT
  Age: 77 Year
  Sex: Male

DRUGS (2)
  1. STILNOX [Suspect]
     Indication: DRUG USE FOR UNKNOWN INDICATION
     Dosage: UNK
     Route: 048
  2. CLOZAPINE [Concomitant]
     Dosage: UNK
     Route: 065

REACTIONS (1)
  - DEATH [None]
